FAERS Safety Report 4336476-8 (Version None)
Quarter: 2004Q2

REPORT INFORMATION
  Report Type: 
  Country: None (occurrence: None)
  Receive Date: 20040407
  Receipt Date: 20040318
  Transmission Date: 20050107
  Serious: Yes (Other)
  Sender: FDA-Public Use
  Company Number: USA030537436

PATIENT
  Age: 58 Year
  Sex: Male
  Weight: 73 kg

DRUGS (2)
  1. HUMULIN 70/30 [Suspect]
     Indication: DIABETES MELLITUS
     Dosage: 15 U/2 DAY
     Dates: start: 20030301, end: 20030501
  2. NPH ILETIN II (PORK) [Suspect]
     Dosage: 11 U DAY

REACTIONS (7)
  - ABASIA [None]
  - ARTHRALGIA [None]
  - BLOOD GLUCOSE INCREASED [None]
  - DRUG HYPERSENSITIVITY [None]
  - DYSPEPSIA [None]
  - RASH [None]
  - WEIGHT INCREASED [None]
